FAERS Safety Report 12971622 (Version 2)
Quarter: 2016Q4

REPORT INFORMATION
  Report Type: Spontaneous
  Country: US (occurrence: US)
  Receive Date: 20161123
  Receipt Date: 20161211
  Transmission Date: 20170207
  Serious: Yes (Other)
  Sender: FDA-Public Use
  Company Number: US-LUNDBECK-DKLU2022900

PATIENT
  Sex: Male

DRUGS (6)
  1. NORTHERA [Suspect]
     Active Substance: DROXIDOPA
     Indication: PRODUCT USED FOR UNKNOWN INDICATION
     Dosage: SCHEDULE A (TITRATING)
     Route: 065
     Dates: start: 20161103
  2. TIKOSYN [Interacting]
     Active Substance: DOFETILIDE
     Indication: ATRIAL FIBRILLATION
     Route: 065
  3. NORTHERA [Interacting]
     Active Substance: DROXIDOPA
     Route: 065
  4. NORTHERA [Interacting]
     Active Substance: DROXIDOPA
     Route: 065
  5. NORTHERA [Interacting]
     Active Substance: DROXIDOPA
     Route: 065
  6. NORTHERA [Interacting]
     Active Substance: DROXIDOPA
     Route: 065

REACTIONS (4)
  - Arrhythmia [Unknown]
  - Drug interaction [Unknown]
  - Condition aggravated [Unknown]
  - Dizziness [Unknown]
